FAERS Safety Report 18413407 (Version 1)
Quarter: 2020Q4

REPORT INFORMATION
  Report Type: Spontaneous
  Country: US (occurrence: US)
  Receive Date: 20201021
  Receipt Date: 20201021
  Transmission Date: 20210114
  Serious: Yes (Hospitalization)
  Sender: FDA-Public Use
  Company Number: US-BEH-2020123658

PATIENT
  Sex: Female

DRUGS (3)
  1. HIZENTRA [Suspect]
     Active Substance: HUMAN IMMUNOGLOBULIN G
     Indication: IMMUNODEFICIENCY COMMON VARIABLE
     Dosage: 10 GRAM, QW (15 GRAM TOTAL DOSE)
     Route: 058
     Dates: start: 20171219, end: 202007
  2. HIZENTRA [Suspect]
     Active Substance: HUMAN IMMUNOGLOBULIN G
     Dosage: 1 GRAM, QW (15 GRAM TOTAL DOSE)
     Route: 058
     Dates: start: 2017, end: 202007
  3. HIZENTRA [Suspect]
     Active Substance: HUMAN IMMUNOGLOBULIN G
     Dosage: 4 GRAM, QW (15 GRAM TOTAL DOSE)
     Route: 058
     Dates: start: 2017, end: 202007

REACTIONS (1)
  - Blood glucose abnormal [Unknown]
